FAERS Safety Report 23217587 (Version 5)
Quarter: 2025Q1

REPORT INFORMATION
  Report Type: Report from Study
  Country: IN (occurrence: IN)
  Receive Date: 20231122
  Receipt Date: 20250304
  Transmission Date: 20250409
  Serious: Yes (Other)
  Sender: TAKEDA
  Company Number: IN-TAKEDA-2023TUS112328

PATIENT
  Sex: Male
  Weight: 57 kg

DRUGS (2)
  1. VEDOLIZUMAB [Suspect]
     Active Substance: VEDOLIZUMAB
     Indication: Crohn^s disease
  2. VEDOLIZUMAB [Suspect]
     Active Substance: VEDOLIZUMAB
     Dosage: 300 MILLIGRAM, Q4WEEKS

REACTIONS (6)
  - Crohn^s disease [Unknown]
  - Weight decreased [Unknown]
  - Haemoglobin abnormal [Unknown]
  - Off label use [Unknown]
  - Frequent bowel movements [Unknown]
  - Fatigue [Unknown]
